FAERS Safety Report 4461019-8 (Version None)
Quarter: 2004Q3

REPORT INFORMATION
  Report Type: 
  Country: None (occurrence: None)
  Receive Date: 20040928
  Receipt Date: 20040629
  Transmission Date: 20050211
  Serious: No
  Sender: FDA-Public Use
  Company Number: US-GLAXOSMITHKLINE-A0516449A

PATIENT
  Age: 42 Year
  Sex: Female
  Weight: 58.2 kg

DRUGS (3)
  1. ADVAIR DISKUS 100/50 [Suspect]
     Indication: ASTHMA
     Route: 055
  2. PREDNISONE [Suspect]
     Indication: ASTHMA
     Dosage: 10MG TWICE PER DAY
     Route: 048
     Dates: start: 20040502, end: 20040507
  3. NASONEX [Suspect]
     Route: 045
     Dates: start: 20040301, end: 20040310

REACTIONS (1)
  - DYSGEUSIA [None]
